FAERS Safety Report 4680428-5 (Version None)
Quarter: 2005Q2

REPORT INFORMATION
  Report Type: 
  Country: None (occurrence: None)
  Receive Date: 20050601
  Receipt Date: 20050517
  Transmission Date: 20051028
  Serious: Yes (Hospitalization)
  Sender: FDA-Public Use
  Company Number: FR_050506428

PATIENT
  Age: 24 Year
  Sex: Female
  Weight: 133 kg

DRUGS (5)
  1. PROZAC [Suspect]
     Dosage: 20 MG/1 DAY
     Dates: start: 20050101
  2. L-THYROXINE [Concomitant]
  3. EUTHYRAL [Concomitant]
  4. ZOLPIDEM TARTRATE [Concomitant]
  5. DIANE [Concomitant]

REACTIONS (8)
  - ANTI FACTOR VIII ANTIBODY POSITIVE [None]
  - ASTHENIA [None]
  - CONDITION AGGRAVATED [None]
  - DRUG INTERACTION [None]
  - HYPOTHYROIDISM [None]
  - MYALGIA [None]
  - VON WILLEBRAND'S DISEASE [None]
  - WEIGHT INCREASED [None]
